FAERS Safety Report 9384560 (Version 1)
Quarter: 2013Q3

REPORT INFORMATION
  Report Type: Spontaneous
  Country: FR (occurrence: FR)
  Receive Date: 20130705
  Receipt Date: 20130705
  Transmission Date: 20140515
  Serious: Yes (Other)
  Sender: FDA-Public Use
  Company Number: FR-GENZYME-THYM-1003883

PATIENT
  Age: 53 Year
  Sex: Female
  Weight: 74 kg

DRUGS (16)
  1. THYMOGLOBULINE [Suspect]
     Indication: IMMUNOSUPPRESSANT DRUG THERAPY
     Dosage: 30.7 MG, QD
     Route: 042
     Dates: start: 20130526, end: 20130526
  2. THYMOGLOBULINE [Suspect]
     Dosage: 122.9 MG, QD
     Route: 042
     Dates: start: 20130527, end: 20130527
  3. THYMOGLOBULINE [Suspect]
     Dosage: 153.6 MG, QD
     Route: 042
     Dates: start: 20130528, end: 20130528
  4. ENDOXAN [Suspect]
     Indication: IMMUNOSUPPRESSANT DRUG THERAPY
     Dosage: 3687 MG, QD
     Route: 042
     Dates: start: 20130526, end: 20130526
  5. ENDOXAN [Suspect]
     Dosage: UNK
     Route: 042
     Dates: start: 20130527, end: 20130528
  6. TAZOCILLINE [Suspect]
     Indication: PRODUCT USED FOR UNKNOWN INDICATION
     Dosage: 4 G, QD
     Route: 042
     Dates: start: 20130527, end: 20130528
  7. UROMITEXAN [Suspect]
     Indication: PRODUCT USED FOR UNKNOWN INDICATION
     Dosage: 922 MG FOUR TIMES IN A DAY
     Route: 042
     Dates: start: 20130527, end: 20130528
  8. LEVOTHYROX [Concomitant]
     Indication: PRODUCT USED FOR UNKNOWN INDICATION
     Dosage: 100 MCG, QD
     Route: 048
  9. LODOZ [Concomitant]
     Indication: PRODUCT USED FOR UNKNOWN INDICATION
     Dosage: 10 MG / 6.25 MG EVERY MORNING
     Route: 048
  10. DELURSAN [Concomitant]
     Indication: PRODUCT USED FOR UNKNOWN INDICATION
     Dosage: 250 MG (2-0-2)
     Route: 048
     Dates: start: 20130520
  11. ALLOPURINOL [Concomitant]
     Indication: PRODUCT USED FOR UNKNOWN INDICATION
     Dosage: 200 MG, QD (IN THE EVENING)
     Route: 048
     Dates: start: 20130520
  12. FLUCONAZOLE [Concomitant]
     Indication: PRODUCT USED FOR UNKNOWN INDICATION
     Dosage: 200 MG, QD
     Route: 048
     Dates: start: 20130520
  13. ZELITREX [Concomitant]
     Indication: PRODUCT USED FOR UNKNOWN INDICATION
     Dosage: 500 MG, BID
     Route: 048
     Dates: start: 20130520
  14. POLARAMINE [Concomitant]
     Indication: PRODUCT USED FOR UNKNOWN INDICATION
     Dosage: 10 MG, QD
     Route: 042
     Dates: start: 20130526, end: 20130527
  15. SOLU MEDROL [Concomitant]
     Indication: PRODUCT USED FOR UNKNOWN INDICATION
     Dosage: 60 MG, QD
     Route: 042
     Dates: start: 20130526, end: 20130527
  16. TOTAL BODY IRRADIATION [Concomitant]
     Indication: PRODUCT USED FOR UNKNOWN INDICATION
     Dosage: UNK
     Route: 065

REACTIONS (2)
  - Hypersensitivity [Recovered/Resolved]
  - Face oedema [Recovered/Resolved]
